FAERS Safety Report 24689187 (Version 1)
Quarter: 2024Q4

REPORT INFORMATION
  Report Type: Spontaneous
  Country: US (occurrence: US)
  Receive Date: 20241203
  Receipt Date: 20241203
  Transmission Date: 20250115
  Serious: Yes (Hospitalization)
  Sender: NOVITIUM PHARMA
  Company Number: US-NOVITIUMPHARMA-2024USNVP02742

PATIENT
  Age: 71 Year
  Sex: Female

DRUGS (3)
  1. PREDNISONE [Suspect]
     Active Substance: PREDNISONE
     Indication: Rheumatoid arthritis
  2. Tobramycin-vancomycin [Concomitant]
     Indication: Arthritis infective
  3. AMPICILLIN [Concomitant]
     Active Substance: AMPICILLIN
     Indication: Arthritis infective

REACTIONS (1)
  - Unmasking of previously unidentified disease [Unknown]
